FAERS Safety Report 5669569-3 (Version None)
Quarter: 2008Q1

REPORT INFORMATION
  Report Type: 
  Country: None (occurrence: None)
  Receive Date: 20080317
  Receipt Date: 20080312
  Transmission Date: 20080703
  Serious: Yes (Death, Life-Threatening, Other)
  Sender: FDA-Public Use
  Company Number: PHHY2008BR02734

PATIENT
  Age: 77 Year
  Sex: Female

DRUGS (3)
  1. OMEPRAZOLE [Concomitant]
     Indication: HEPATIC NEOPLASM MALIGNANT
     Dosage: 1 TABLET IN THE MORNING
     Route: 048
     Dates: start: 20070901
  2. LOSARTAN POTASSIUM [Concomitant]
     Indication: HYPERTENSION
     Dosage: 1 TABLET IN THE MORNING
     Route: 048
     Dates: start: 20070901
  3. CODATEN [Suspect]
     Indication: PAIN
     Dosage: 1 TABLET EVERY 6 HOURS
     Route: 048
     Dates: start: 20080305

REACTIONS (15)
  - ABDOMINAL PAIN UPPER [None]
  - ASTHENIA [None]
  - BLOOD GLUCOSE DECREASED [None]
  - CONSTIPATION [None]
  - DEATH [None]
  - DYSPHAGIA [None]
  - EATING DISORDER [None]
  - GAIT DISTURBANCE [None]
  - HEPATIC PAIN [None]
  - HYPERSENSITIVITY [None]
  - PARALYSIS [None]
  - PRURITUS [None]
  - SOMNOLENCE [None]
  - TREMOR [None]
  - URINE OUTPUT DECREASED [None]
